FAERS Safety Report 25402379 (Version 2)
Quarter: 2025Q2

REPORT INFORMATION
  Report Type: Report from Study
  Country: CA (occurrence: CA)
  Receive Date: 20250605
  Receipt Date: 20250630
  Transmission Date: 20250717
  Serious: Yes (Other)
  Sender: CSL BEHRING
  Company Number: CA-BEH-2025207645

PATIENT
  Age: 81 Year
  Sex: Male

DRUGS (2)
  1. KORSUVA [Interacting]
     Active Substance: DIFELIKEFALIN ACETATE
     Indication: Product used for unknown indication
     Dosage: 35 ?G, Q3W
     Route: 042
     Dates: end: 20250527
  2. HYDROMORPHONE [Interacting]
     Active Substance: HYDROMORPHONE
     Indication: Pain

REACTIONS (2)
  - Palliative care [Unknown]
  - Drug interaction [Unknown]

NARRATIVE: CASE EVENT DATE: 20250101
